FAERS Safety Report 24133859 (Version 1)
Quarter: 2024Q3

REPORT INFORMATION
  Report Type: Spontaneous
  Country: US (occurrence: US)
  Receive Date: 20240724
  Receipt Date: 20240724
  Transmission Date: 20241017
  Serious: No
  Sender: PFIZER
  Company Number: US-PFIZER INC-202400222175

PATIENT
  Age: 78 Year
  Sex: Male

DRUGS (1)
  1. PIROXICAM [Suspect]
     Active Substance: PIROXICAM

REACTIONS (1)
  - Drug ineffective [Unknown]
